FAERS Safety Report 9532997 (Version 1)
Quarter: 2013Q3

REPORT INFORMATION
  Report Type: Spontaneous
  Country: US (occurrence: US)
  Receive Date: 20130918
  Receipt Date: 20130918
  Transmission Date: 20140515
  Serious: Yes (Other)
  Sender: FDA-Public Use
  Company Number: US-ABBVIE-13P-163-1147711-00

PATIENT
  Age: 55 Year
  Sex: Male
  Weight: 106.69 kg

DRUGS (4)
  1. HUMIRA [Suspect]
     Indication: PSORIASIS
     Dates: start: 201101, end: 201301
  2. TAZORAC [Concomitant]
     Indication: PSORIASIS
  3. CLOBETASOL [Concomitant]
     Indication: PSORIASIS
  4. UNKNOWN BLOOD PRESSURE MEDICATION [Concomitant]
     Indication: HYPERTENSION

REACTIONS (3)
  - Inguinal hernia [Recovered/Resolved]
  - Psoriasis [Unknown]
  - Psoriasis [Unknown]
